FAERS Safety Report 9542670 (Version 1)
Quarter: 2013Q3

REPORT INFORMATION
  Report Type: Spontaneous
  Country: FR (occurrence: FR)
  Receive Date: 20130923
  Receipt Date: 20130923
  Transmission Date: 20140515
  Serious: Yes (Other)
  Sender: FDA-Public Use
  Company Number: FR-PFIZER INC-2013267660

PATIENT
  Age: 11 Year
  Sex: Male

DRUGS (2)
  1. FLUOROURACILE PFIZER [Suspect]
     Dosage: 3050 MG, CYCLIC
     Route: 042
     Dates: start: 20130130, end: 20130221
  2. CISPLATIN [Concomitant]
     Dosage: UNK

REACTIONS (2)
  - Angioedema [Recovered/Resolved]
  - Hypersensitivity [Recovered/Resolved]
